FAERS Safety Report 8921397 (Version 2)
Quarter: 2013Q1

REPORT INFORMATION
  Report Type: Spontaneous
  Country: US (occurrence: US)
  Receive Date: 20121121
  Receipt Date: 20130311
  Transmission Date: 20140127
  Serious: No
  Sender: FDA-Public Use
  Company Number: US-ASTRAZENECA-2012SE84718

PATIENT
  Age: 56 Year
  Sex: Female

DRUGS (1)
  1. TOPROL  XL [Suspect]
     Route: 048

REACTIONS (3)
  - Malaise [Unknown]
  - Hypertension [Unknown]
  - Drug dose omission [Unknown]
